FAERS Safety Report 24942224 (Version 2)
Quarter: 2025Q2

REPORT INFORMATION
  Report Type: Spontaneous
  Country: CA (occurrence: CA)
  Receive Date: 20250207
  Receipt Date: 20250407
  Transmission Date: 20250716
  Serious: Yes (Death)
  Sender: PFIZER
  Company Number: CA-PFIZER INC-202500025715

PATIENT
  Age: 67 Year
  Sex: Male

DRUGS (15)
  1. SOMAVERT [Suspect]
     Active Substance: PEGVISOMANT
     Indication: Acromegaly
     Dosage: 30 MG, WEEKLY
     Route: 058
     Dates: start: 201607, end: 2016
  2. SOMAVERT [Suspect]
     Active Substance: PEGVISOMANT
     Dosage: 30 MG, 2X/WEEK
     Route: 058
     Dates: start: 2016, end: 2019
  3. SOMAVERT [Suspect]
     Active Substance: PEGVISOMANT
     Route: 058
     Dates: start: 201906, end: 2019
  4. SOMAVERT [Suspect]
     Active Substance: PEGVISOMANT
     Route: 058
     Dates: start: 2019, end: 2019
  5. SOMAVERT [Suspect]
     Active Substance: PEGVISOMANT
     Dosage: 30 MG, 1X/DAY
     Route: 058
     Dates: start: 2019
  6. LANREOTIDE [Concomitant]
     Active Substance: LANREOTIDE
     Route: 030
  7. OLMESARTAN MEDOXOMIL [Concomitant]
     Active Substance: OLMESARTAN MEDOXOMIL
     Dosage: DOSE: 20/12.5 MG
     Route: 048
  8. ROSUVASTATIN CALCIUM [Concomitant]
     Active Substance: ROSUVASTATIN CALCIUM
     Dosage: 20 MG 1X/DAY
     Route: 048
  9. PRO METFORMIN [Concomitant]
  10. PRO GLYBURIDE [Concomitant]
     Dosage: 5 MG 2X/DAY
     Route: 048
  11. VICTOZA [Concomitant]
     Active Substance: LIRAGLUTIDE
     Dosage: 1.8 MG 1X/DAY
     Route: 058
  12. SYNTHROID [Concomitant]
     Active Substance: LEVOTHYROXINE SODIUM
     Dosage: 200 MG 1X/DAY
     Route: 048
  13. TESTOSTERONE [Concomitant]
     Active Substance: TESTOSTERONE
  14. OZEMPIC [Concomitant]
     Active Substance: SEMAGLUTIDE
     Dosage: 1 DF, WEEKLY
  15. INSULIN NOS [Concomitant]
     Active Substance: INSULIN NOS

REACTIONS (1)
  - Death [Fatal]

NARRATIVE: CASE EVENT DATE: 20240225
